FAERS Safety Report 25136441 (Version 1)
Quarter: 2025Q1

REPORT INFORMATION
  Report Type: Spontaneous
  Country: US (occurrence: US)
  Receive Date: 20250328
  Receipt Date: 20250328
  Transmission Date: 20250408
  Serious: No
  Sender: NOVAST LABORATORIES LTD
  Company Number: US-NOVAST LABORATORIES INC.-2025NOV000181

PATIENT

DRUGS (1)
  1. LARIN 24 FE [Suspect]
     Active Substance: ETHINYL ESTRADIOL\NORETHINDRONE ACETATE
     Indication: Contraception
     Route: 048

REACTIONS (1)
  - Inappropriate schedule of product administration [Unknown]
